FAERS Safety Report 24994370 (Version 1)
Quarter: 2025Q1

REPORT INFORMATION
  Report Type: Spontaneous
  Country: US (occurrence: None)
  Receive Date: 20250220
  Receipt Date: 20250220
  Transmission Date: 20250409
  Serious: Yes (Hospitalization)
  Sender: FDA-CTU
  Company Number: None

PATIENT
  Age: 77 Year
  Sex: Male
  Weight: 84 kg

DRUGS (3)
  1. APIXABAN [Suspect]
     Active Substance: APIXABAN
     Indication: Atrial fibrillation
     Dosage: FREQUENCY : TWICE A DAY;?
     Route: 048
     Dates: start: 20240828, end: 20241026
  2. ASPIRIN 81MG [Suspect]
     Active Substance: ASPIRIN
     Indication: Antiplatelet therapy
     Dosage: FREQUENCY : DAILY;?
     Route: 048
     Dates: start: 20240822, end: 20241026
  3. PLAVIX [Suspect]
     Active Substance: CLOPIDOGREL BISULFATE

REACTIONS (7)
  - Gastrointestinal haemorrhage [None]
  - Cerebral haemorrhage [None]
  - Fall [None]
  - Femur fracture [None]
  - Subdural haematoma [None]
  - Adult failure to thrive [None]
  - Vitamin B12 decreased [None]

NARRATIVE: CASE EVENT DATE: 20240924
